FAERS Safety Report 13824130 (Version 3)
Quarter: 2017Q3

REPORT INFORMATION
  Report Type: Report from Study
  Country: US (occurrence: US)
  Receive Date: 20170802
  Receipt Date: 20170926
  Transmission Date: 20171127
  Serious: No
  Sender: FDA-Public Use
  Company Number: PHEH2017US023875

PATIENT
  Sex: Male
  Weight: 66.68 kg

DRUGS (1)
  1. COSENTYX [Suspect]
     Active Substance: SECUKINUMAB
     Indication: PSORIASIS
     Dosage: 300 MG, QMO
     Route: 030
     Dates: start: 20170719

REACTIONS (3)
  - Incorrect route of drug administration [Unknown]
  - Injection site extravasation [Unknown]
  - Product quality issue [Unknown]
